FAERS Safety Report 8473666-7 (Version None)
Quarter: 2012Q2

REPORT INFORMATION
  Report Type: 
  Country: None (occurrence: None)
  Receive Date: 20120628
  Receipt Date: 20110815
  Transmission Date: 20120825
  Serious: Yes (Death)
  Sender: FDA-Public Use
  Company Number: US-MYLANLABS-2011S1017073

PATIENT
  Age: 49 Year
  Sex: Male

DRUGS (6)
  1. SERTRALINE HYDROCHLORIDE [Concomitant]
     Route: 048
  2. BUSPIRONE HCL [Concomitant]
     Route: 048
  3. GABAPENTIN [Concomitant]
     Route: 048
  4. CLOZAPINE [Suspect]
     Route: 048
  5. LAMOTRIGINE [Concomitant]
     Route: 048
  6. CLOZAPINE [Suspect]
     Route: 048

REACTIONS (1)
  - DEATH [None]
